FAERS Safety Report 5935211-7 (Version None)
Quarter: 2008Q4

REPORT INFORMATION
  Report Type: 
  Country: None (occurrence: None)
  Receive Date: 20081028
  Receipt Date: 20081017
  Transmission Date: 20090506
  Serious: Yes (Death)
  Sender: FDA-Public Use
  Company Number: GXKR2008IT09946

PATIENT
  Age: 56 Year
  Sex: Female

DRUGS (10)
  1. MITOXANTRONE [Suspect]
     Indication: FOLLICLE CENTRE LYMPHOMA, FOLLICULAR GRADE I, II, III STAGE IV
     Dosage: 10 MG/M2, DAY 1, 4 CYCLES, UNKNOWN
     Dates: start: 20040401
  2. DEXAMETHASONE [Suspect]
     Indication: FOLLICLE CENTRE LYMPHOMA, FOLLICULAR GRADE I, II, III STAGE IV
     Dosage: 20 MG, DAYS 1-5 EVERY 4 WEEKS, 4 CYCLES, UNKNOWN
     Dates: start: 20040401
  3. VINCRISTINE [Suspect]
     Indication: FOLLICLE CENTRE LYMPHOMA, FOLLICULAR GRADE I, II, III STAGE IV
     Dosage: 4 CYCLES, UNKNOWN
     Dates: end: 20050901
  4. DOXORUBICIN HCL [Concomitant]
     Indication: FOLLICLE CENTRE LYMPHOMA, FOLLICULAR GRADE I, II, III STAGE IV
     Dosage: 4 CYCLES, UNKNOWN
     Dates: end: 20050901
  5. PREDNISONE [Suspect]
     Indication: FOLLICLE CENTRE LYMPHOMA, FOLLICULAR GRADE I, II, III STAGE IV
     Dosage: 4 CYCLES, UNKNOWN
     Dates: end: 20050901
  6. FLUDARABINE (FLUDARABINE) UNKNOWN [Suspect]
     Indication: FOLLICLE CENTRE LYMPHOMA, FOLLICULAR GRADE I, II, III STAGE IV
     Dosage: 25 MG/M2, DAYS 1-3, 4 CYCLES, UNKNOWN
     Dates: start: 20040401
  7. CYCLOPHOSPHAMIDE [Suspect]
     Indication: FOLLICLE CENTRE LYMPHOMA, FOLLICULAR GRADE I, II, III STAGE IV
     Dosage: 4 CYCLES, UNKNOWN, HIGH DOSE, UNKNOWN
     Dates: end: 20050901
  8. CYCLOPHOSPHAMIDE [Suspect]
     Indication: FOLLICLE CENTRE LYMPHOMA, FOLLICULAR GRADE I, II, III STAGE IV
     Dosage: 4 CYCLES, UNKNOWN, HIGH DOSE, UNKNOWN
     Dates: start: 20060101
  9. RITUXIMAB (RITUXIMAB) UNKNOWN [Suspect]
     Indication: FOLLICLE CENTRE LYMPHOMA, FOLLICULAR GRADE I, II, III STAGE IV
     Dosage: UNK, 10 TIMES, UNKNOWN, EVERY 3 MONTHS, UNKNOWN
     Dates: start: 20040401
  10. COLONY STIMULATING FACTORS (NO INGREDIENTS/SUBSTANCES) [Concomitant]

REACTIONS (4)
  - ACUTE GRAFT VERSUS HOST DISEASE [None]
  - ACUTE MYELOID LEUKAEMIA [None]
  - PANCYTOPENIA [None]
  - UNRELATED DONOR BONE MARROW TRANSPLANTATION THERAPY [None]
